FAERS Safety Report 5411772-1 (Version None)
Quarter: 2007Q3

REPORT INFORMATION
  Report Type: 
  Country: None (occurrence: None)
  Receive Date: 20070813
  Receipt Date: 20070806
  Transmission Date: 20080115
  Serious: Yes (Death)
  Sender: FDA-Public Use
  Company Number: PHHO2007JP13008

PATIENT
  Age: 56 Year
  Sex: Male
  Weight: 93 kg

DRUGS (4)
  1. GLEEVEC [Suspect]
     Indication: GASTROINTESTINAL STROMAL TUMOUR
     Dosage: 400 MG, QD
     Route: 048
     Dates: start: 20040525, end: 20060301
  2. GLEEVEC [Suspect]
     Dosage: 500 MG, QD
     Route: 048
     Dates: start: 20060302, end: 20060426
  3. GLEEVEC [Suspect]
     Dosage: 600 MG, QD
     Route: 048
     Dates: start: 20060427, end: 20060621
  4. GLEEVEC [Suspect]
     Dosage: 800 MG, QD
     Route: 048
     Dates: start: 20060622, end: 20060817

REACTIONS (4)
  - ANAEMIA [None]
  - MELAENA [None]
  - NEOPLASM PROGRESSION [None]
  - TUMOUR HAEMORRHAGE [None]
